FAERS Safety Report 5243156-3 (Version None)
Quarter: 2007Q1

REPORT INFORMATION
  Report Type: 
  Country: None (occurrence: None)
  Receive Date: 20070221
  Receipt Date: 20070210
  Transmission Date: 20070707
  Serious: Yes (Life-Threatening)
  Sender: FDA-Public Use
  Company Number: BE-PFIZER INC-2007012087

PATIENT
  Sex: Female

DRUGS (1)
  1. SOLU-MEDROL [Suspect]
     Indication: PANCREATIC CARCINOMA METASTATIC
     Route: 042

REACTIONS (3)
  - ANAPHYLACTIC SHOCK [None]
  - HAEMOLYTIC ANAEMIA [None]
  - RENAL FAILURE [None]
